FAERS Safety Report 9108463 (Version 1)
Quarter: 2013Q1

REPORT INFORMATION
  Report Type: Spontaneous
  Country: CA (occurrence: CA)
  Receive Date: 20130222
  Receipt Date: 20130222
  Transmission Date: 20140127
  Serious: Yes (Other)
  Sender: FDA-Public Use
  Company Number: CA-009507513-1302CAN007833

PATIENT
  Age: 48 None
  Sex: Female
  Weight: 110 kg

DRUGS (3)
  1. PEGETRON [Suspect]
     Indication: HEPATITIS C
     Dosage: 180 MICROGRAM, QW
     Route: 058
     Dates: start: 20120815, end: 201302
  2. PEGETRON [Suspect]
     Dosage: 400 MG, BID
     Route: 048
     Dates: start: 20120815, end: 201302
  3. VICTRELIS [Suspect]
     Indication: HEPATITIS C
     Dosage: UNK
     Route: 065

REACTIONS (11)
  - Retinal detachment [Not Recovered/Not Resolved]
  - Dysgeusia [Not Recovered/Not Resolved]
  - Dry mouth [Not Recovered/Not Resolved]
  - Headache [Unknown]
  - Influenza like illness [Not Recovered/Not Resolved]
  - Overdose [Unknown]
  - Visual impairment [Unknown]
  - Dry eye [Not Recovered/Not Resolved]
  - Ocular hyperaemia [Not Recovered/Not Resolved]
  - Underdose [Unknown]
  - Product quality issue [Unknown]
